FAERS Safety Report 21767001 (Version 2)
Quarter: 2023Q1

REPORT INFORMATION
  Report Type: Spontaneous
  Country: US (occurrence: US)
  Receive Date: 20221222
  Receipt Date: 20230102
  Transmission Date: 20230417
  Serious: No
  Sender: FDA-Public Use
  Company Number: US-INCYTE CORPORATION-2022IN012417

PATIENT

DRUGS (1)
  1. JAKAFI [Suspect]
     Active Substance: RUXOLITINIB
     Indication: Osteochondrodysplasia
     Dosage: 5 MILLIGRAM, BID
     Route: 048

REACTIONS (3)
  - Eye infection [Unknown]
  - Increased appetite [Unknown]
  - Off label use [Unknown]
